FAERS Safety Report 14938007 (Version 1)
Quarter: 2018Q2

REPORT INFORMATION
  Report Type: Spontaneous
  Country: DE (occurrence: DE)
  Receive Date: 20180525
  Receipt Date: 20180525
  Transmission Date: 20180711
  Serious: Yes (Life-Threatening, Hospitalization)
  Sender: FDA-Public Use
  Company Number: DE-GUERBET-DE-20180062

PATIENT
  Age: 81 Year
  Sex: Female
  Weight: 58 kg

DRUGS (3)
  1. L-THYROXIN BETA [Concomitant]
     Indication: PRODUCT USED FOR UNKNOWN INDICATION
     Dosage: 75 MICROGRAM / DAY
     Route: 065
  2. ENABETA COMP 10MG/25MG [Concomitant]
     Indication: PRODUCT USED FOR UNKNOWN INDICATION
     Dosage: 10/25 MG / DAY
     Route: 065
  3. GADOTERIC ACID [Suspect]
     Active Substance: GADOTERATE MEGLUMINE
     Indication: PRODUCT USED FOR UNKNOWN INDICATION
     Route: 065

REACTIONS (7)
  - Hypokalaemia [Unknown]
  - Urinary incontinence [Unknown]
  - Circulatory collapse [Unknown]
  - Cardiac arrest [Unknown]
  - Electrolyte imbalance [Unknown]
  - Erythema [Unknown]
  - Ventricular arrhythmia [Unknown]
